FAERS Safety Report 4337987-1 (Version None)
Quarter: 2004Q2

REPORT INFORMATION
  Report Type: 
  Country: None (occurrence: None)
  Receive Date: 20040408
  Receipt Date: 20040326
  Transmission Date: 20050107
  Serious: Yes (Death, Hospitalization, Other)
  Sender: FDA-Public Use
  Company Number: 2004006745

PATIENT
  Age: 66 Year
  Sex: Male
  Weight: 65 kg

DRUGS (16)
  1. SULPERAZON (CEFOPERAZONE, SULBACTAM) [Suspect]
     Indication: PERITONITIS BACTERIAL
     Dosage: 2 GRAM (BID), INTRAVENOUS
     Route: 042
     Dates: start: 20031208, end: 20040126
  2. SULPERAZON (CEFOPERAZONE, SULBACTAM) [Suspect]
     Indication: PHARYNGOLARYNGEAL PAIN
     Dosage: 2 GRAM (BID), INTRAVENOUS
     Route: 042
     Dates: start: 20031208, end: 20040126
  3. SULPERAZON (CEFOPERAZONE, SULBACTAM) [Suspect]
     Indication: PYREXIA
     Dosage: 2 GRAM (BID), INTRAVENOUS
     Route: 042
     Dates: start: 20031208, end: 20040126
  4. FUROSEMIDE [Concomitant]
  5. SPIRONOLACTONE [Concomitant]
  6. FAMOTIDINE [Concomitant]
  7. IRSOGLADINE MALEATE (IRSOGLADINE MALEATE) [Concomitant]
  8. LIVACT (AMINO ACIDS NOS) [Concomitant]
  9. MAGNEXIUM OXIDE (MAGNEXIUM OXIDE) [Concomitant]
  10. AMINO ACIDS (AMINO ACIDS) [Concomitant]
  11. GLUCOSE INJECTION (GLUCOSE INJECTION) [Concomitant]
  12. ALBUMIN (HUMAN) [Concomitant]
  13. FUROSEMIDE [Concomitant]
  14. DEXCHLORPHENIRAMINE MALEATE (DEXCHLORPHENIRAMINE MALEATE) [Concomitant]
  15. OLOPATADINE HYDROCHLORIDE (OLOPATADINE HYDROCHLORIDE) [Concomitant]
  16. ALL OTHER THERAPEUTIC PRODUCTS [Suspect]
     Indication: ILL-DEFINED DISORDER
     Dates: end: 20040101

REACTIONS (14)
  - ASCITES [None]
  - BLOOD ALKALINE PHOSPHATASE INCREASED [None]
  - BLOOD CREATININE INCREASED [None]
  - BLOOD LACTATE DEHYDROGENASE INCREASED [None]
  - BRONCHITIS [None]
  - HEART RATE INCREASED [None]
  - MALAISE [None]
  - NASOPHARYNGITIS [None]
  - PANCYTOPENIA [None]
  - PERITONITIS BACTERIAL [None]
  - PHARYNGOLARYNGEAL PAIN [None]
  - SEPSIS [None]
  - TOXIC EPIDERMAL NECROLYSIS [None]
  - UPPER RESPIRATORY TRACT INFLAMMATION [None]
